FAERS Safety Report 9733581 (Version 2)
Quarter: 2014Q1

REPORT INFORMATION
  Report Type: Spontaneous
  Country: MX (occurrence: MX)
  Receive Date: 20131205
  Receipt Date: 20140106
  Transmission Date: 20141002
  Serious: Yes (Other)
  Sender: FDA-Public Use
  Company Number: MX-GLAXOSMITHKLINE-A1052129A

PATIENT
  Age: 72 Year
  Sex: Female

DRUGS (1)
  1. ZOVIRAX [Suspect]
     Indication: GENITAL HERPES

REACTIONS (2)
  - Liver injury [Unknown]
  - Cell-mediated immune deficiency [Unknown]
